FAERS Safety Report 4358647-7 (Version None)
Quarter: 2004Q2

REPORT INFORMATION
  Report Type: 
  Country: None (occurrence: None)
  Receive Date: 20040513
  Receipt Date: 20040513
  Transmission Date: 20050107
  Serious: No
  Sender: FDA-Public Use
  Company Number: None

PATIENT
  Age: 59 Year
  Sex: Female
  Weight: 74.8435 kg

DRUGS (1)
  1. NICOTROL [Suspect]
     Indication: SMOKING CESSATION THERAPY
     Dosage: (6) A DAY
     Dates: start: 20040114, end: 20040506

REACTIONS (11)
  - BURNING SENSATION [None]
  - DERMATITIS EXFOLIATIVE [None]
  - EYE DISCHARGE [None]
  - EYE IRRITATION [None]
  - FEELING ABNORMAL [None]
  - HEADACHE [None]
  - INFLUENZA LIKE ILLNESS [None]
  - LIP SLOUGHING [None]
  - NECK PAIN [None]
  - ORAL DISCOMFORT [None]
  - PYREXIA [None]
